FAERS Safety Report 17855669 (Version 1)
Quarter: 2020Q2

REPORT INFORMATION
  Report Type: Spontaneous
  Country: CN (occurrence: CN)
  Receive Date: 20200603
  Receipt Date: 20200603
  Transmission Date: 20200714
  Serious: Yes (Other)
  Sender: FDA-Public Use
  Company Number: CN-PFIZER INC-2020213302

PATIENT
  Age: 26 Year
  Sex: Female
  Weight: 55 kg

DRUGS (2)
  1. SODIUM CHLORIDE + GLUCOSE [Concomitant]
     Indication: ABORTION MISSED
     Dosage: 250 ML, 1X/DAY
     Route: 041
     Dates: start: 20200518, end: 20200518
  2. MISOPROSTOL. [Suspect]
     Active Substance: MISOPROSTOL
     Indication: ABORTION MISSED
     Dosage: 3 DF, 1X/DAY
     Route: 048
     Dates: start: 20200518, end: 20200518

REACTIONS (5)
  - Off label use [Unknown]
  - Corneal oedema [Recovered/Resolved]
  - Product use in unapproved indication [Unknown]
  - Rash [Recovered/Resolved]
  - Hypoaesthesia [Recovering/Resolving]

NARRATIVE: CASE EVENT DATE: 20200518
